FAERS Safety Report 4388551-X (Version None)
Quarter: 2004Q2

REPORT INFORMATION
  Report Type: 
  Country: None (occurrence: None)
  Receive Date: 20040623
  Receipt Date: 20040608
  Transmission Date: 20050107
  Serious: Yes (Life-Threatening)
  Sender: FDA-Public Use
  Company Number: CART-10068

PATIENT
  Age: 32 Year
  Sex: Female
  Weight: 65.7716 kg

DRUGS (1)
  1. CARTICEL [Suspect]
     Indication: ARTHROPATHY
     Dosage: 1 NA ONCE IS
     Dates: start: 20030220, end: 20030220

REACTIONS (16)
  - ANAEMIA [None]
  - ARTHRITIS BACTERIAL [None]
  - CARDIOLIPIN ANTIBODY POSITIVE [None]
  - CATHETER RELATED COMPLICATION [None]
  - DEEP VEIN THROMBOSIS [None]
  - ERYTHEMA [None]
  - FAILURE OF IMPLANT [None]
  - HAEMARTHROSIS [None]
  - HYPOKALAEMIA [None]
  - LYMPHOCYTE PERCENTAGE DECREASED [None]
  - POST PROCEDURAL COMPLICATION [None]
  - POST PROCEDURAL PAIN [None]
  - PROCEDURAL COMPLICATION [None]
  - SKIN INDURATION [None]
  - STAPHYLOCOCCAL SEPSIS [None]
  - THROMBOPHLEBITIS SUPERFICIAL [None]
